FAERS Safety Report 19279023 (Version 2)
Quarter: 2021Q2

REPORT INFORMATION
  Report Type: Spontaneous
  Country: US (occurrence: US)
  Receive Date: 20210520
  Receipt Date: 20210604
  Transmission Date: 20210717
  Serious: Yes (Other)
  Sender: FDA-Public Use
  Company Number: US-TEVA-2021-US-1911351

PATIENT
  Age: 54 Year
  Sex: Female

DRUGS (2)
  1. AJOVY [Suspect]
     Active Substance: FREMANEZUMAB-VFRM
     Dosage: 225 MG / 1.5 ML
     Route: 065
     Dates: start: 20210303
  2. AJOVY [Suspect]
     Active Substance: FREMANEZUMAB-VFRM

REACTIONS (16)
  - Electric shock sensation [Unknown]
  - Injection site pruritus [Unknown]
  - Injection site rash [Unknown]
  - Pain [Unknown]
  - Impaired quality of life [Unknown]
  - Injection site swelling [Unknown]
  - Injection site pain [Unknown]
  - Suicidal ideation [Recovered/Resolved]
  - Crying [Unknown]
  - Frustration tolerance decreased [Unknown]
  - Erythema [Unknown]
  - Injection site urticaria [Unknown]
  - Insomnia [Unknown]
  - Infection [Unknown]
  - Scratch [Unknown]
  - Surgery [Unknown]

NARRATIVE: CASE EVENT DATE: 202103
